FAERS Safety Report 19144107 (Version 1)
Quarter: 2021Q2

REPORT INFORMATION
  Report Type: Spontaneous
  Country: US (occurrence: US)
  Receive Date: 20210416
  Receipt Date: 20210416
  Transmission Date: 20210717
  Serious: No
  Sender: FDA-Public Use
  Company Number: US-TERSERA THERAPEUTICS LLC-2021TRS000703

PATIENT

DRUGS (2)
  1. LANREOTIDE [Concomitant]
     Active Substance: LANREOTIDE
     Indication: PRODUCT USED FOR UNKNOWN INDICATION
     Dosage: UNK UNK, MONTHLY
     Route: 065
  2. XERMELO [Suspect]
     Active Substance: TELOTRISTAT ETHYL
     Indication: CARCINOID SYNDROME
     Dosage: 250 MG, TID (1 TABLET BY MOUTH 3 TIMES A DAY WITH FOOD)
     Route: 048
     Dates: start: 20170623

REACTIONS (1)
  - Blood chromogranin A increased [Not Recovered/Not Resolved]

NARRATIVE: CASE EVENT DATE: 202101
